FAERS Safety Report 5825384-9 (Version None)
Quarter: 2008Q3

REPORT INFORMATION
  Report Type: 
  Country: None (occurrence: None)
  Receive Date: 20080725
  Receipt Date: 20080725
  Transmission Date: 20090109
  Serious: Yes (Disabling)
  Sender: FDA-Public Use
  Company Number: None

PATIENT
  Age: 48 Year
  Sex: Female

DRUGS (1)
  1. TAXOTERE [Suspect]
     Indication: BREAST CANCER
     Dosage: 145MG 1ST DOSE IV DRIP, PRESENTLY UNKNOWN
     Route: 041
     Dates: start: 20080201, end: 20080201

REACTIONS (4)
  - DIZZINESS [None]
  - DYSPNOEA [None]
  - VISUAL FIELD DEFECT [None]
  - VISUAL IMPAIRMENT [None]
